FAERS Safety Report 7282640-8 (Version None)
Quarter: 2011Q1

REPORT INFORMATION
  Report Type: 
  Country: None (occurrence: None)
  Receive Date: 20110209
  Receipt Date: 20110126
  Transmission Date: 20110831
  Serious: Yes (Other)
  Sender: FDA-Public Use
  Company Number: JP-BAYER-2011-008922

PATIENT
  Age: 85 Year
  Sex: Male

DRUGS (1)
  1. NEXAVAR 200MG SPECIFIC DRUG USE INVESTIGATION (HCC) [Suspect]
     Indication: HEPATIC NEOPLASM MALIGNANT
     Dosage: 400 MG, BID
     Route: 048
     Dates: start: 20110107, end: 20110119

REACTIONS (2)
  - BLOOD BILIRUBIN INCREASED [None]
  - HEPATIC ENCEPHALOPATHY [None]
